FAERS Safety Report 8082564 (Version 2)
Quarter: 2018Q3

REPORT INFORMATION
  Report Type: Spontaneous
  Country: FR (occurrence: FR)
  Receive Date: 20110809
  Receipt Date: 20180911
  Transmission Date: 20181010
  Serious: Yes (Other)
  Sender: FDA-Public Use
  Company Number: FR-PFIZER INC-2011178276

PATIENT
  Age: 55 Year
  Sex: Female

DRUGS (5)
  1. LYRICA [Suspect]
     Active Substance: PREGABALIN
     Dosage: 25 MG, DAILY
     Route: 048
  2. LYRICA [Suspect]
     Active Substance: PREGABALIN
     Dosage: 50 MG, DAILY
     Route: 048
     Dates: start: 20110603, end: 20110613
  3. RIVOTRIL [Suspect]
     Active Substance: CLONAZEPAM
     Dosage: 1 DF, 3X/DAY
     Route: 048
  4. AVLOCARDYL [Concomitant]
     Active Substance: PROPRANOLOL HYDROCHLORIDE
     Dosage: 160 MG, DAILY
     Route: 048
  5. TEGRETOL [Suspect]
     Active Substance: CARBAMAZEPINE
     Dosage: 150 MG, DAILY
     Route: 048

REACTIONS (5)
  - Hypokinesia [Recovered/Resolved]
  - Impaired driving ability [Recovered/Resolved]
  - Sedation [Recovered/Resolved]
  - Apathy [Recovered/Resolved]
  - Asthenia [Recovered/Resolved]

NARRATIVE: CASE EVENT DATE: 20110603
